FAERS Safety Report 8282717-4 (Version None)
Quarter: 2012Q2

REPORT INFORMATION
  Report Type: 
  Country: None (occurrence: None)
  Receive Date: 20120413
  Receipt Date: 20120404
  Transmission Date: 20120825
  Serious: Yes (Death)
  Sender: FDA-Public Use
  Company Number: US-PFIZER INC-2011309953

PATIENT
  Age: 56 Year
  Sex: Male

DRUGS (8)
  1. KETAMINE HCL [Suspect]
  2. AMITRIPTYLINE HCL [Suspect]
  3. MEMANTINE HCL [Suspect]
  4. METHADON HCL TAB [Suspect]
  5. OXYCODONE HCL [Suspect]
  6. DIAZEPAM [Suspect]
  7. CITALOPRAM [Suspect]
  8. ETHANOL [Suspect]

REACTIONS (2)
  - CARDIO-RESPIRATORY ARREST [None]
  - DRUG ABUSE [None]
